FAERS Safety Report 8118322-X (Version None)
Quarter: 2012Q1

REPORT INFORMATION
  Report Type: 
  Country: None (occurrence: None)
  Receive Date: 20120207
  Receipt Date: 20120203
  Transmission Date: 20120608
  Serious: Yes (Other)
  Sender: FDA-Public Use
  Company Number: US-PFIZER INC-2012030792

PATIENT
  Sex: Female
  Weight: 51.701 kg

DRUGS (4)
  1. PREMARIN [Suspect]
     Indication: MENOPAUSE
  2. PROTONIX [Concomitant]
     Indication: IRRITABLE BOWEL SYNDROME
     Dosage: 40 MG, 1X/DAY
     Route: 048
  3. LIBRAX [Concomitant]
     Indication: IRRITABLE BOWEL SYNDROME
     Dosage: UNK, 3X/DAY
  4. PREMARIN [Suspect]
     Indication: HORMONE REPLACEMENT THERAPY
     Dosage: 0.9 MG, 1X/DAY
     Route: 048
     Dates: start: 19850101

REACTIONS (2)
  - COLON CANCER [None]
  - POLYP [None]
